FAERS Safety Report 5705305-X (Version None)
Quarter: 2008Q2

REPORT INFORMATION
  Report Type: 
  Country: None (occurrence: None)
  Receive Date: 20080415
  Receipt Date: 20080402
  Transmission Date: 20081010
  Serious: Yes (Other)
  Sender: FDA-Public Use
  Company Number: TW-RANBAXY-2008RR-14193

PATIENT

DRUGS (4)
  1. GABAPENTIN CAPSULE 400MG [Suspect]
     Indication: LIMB DISCOMFORT
     Dosage: 300 MG, PRN
  2. ACARBOSE [Concomitant]
     Indication: BLOOD GLUCOSE ABNORMAL
  3. GLIMEPIRIDE [Concomitant]
     Indication: BLOOD GLUCOSE ABNORMAL
  4. ROSIGLITAZONE [Concomitant]
     Indication: BLOOD GLUCOSE ABNORMAL

REACTIONS (1)
  - ALTERED STATE OF CONSCIOUSNESS [None]
